FAERS Safety Report 9834007 (Version 2)
Quarter: 2014Q1

REPORT INFORMATION
  Report Type: Spontaneous
  Country: US (occurrence: US)
  Receive Date: 20140122
  Receipt Date: 20140122
  Transmission Date: 20141002
  Serious: Yes (Hospitalization)
  Sender: FDA-Public Use
  Company Number: US-009507513-0808USA02739

PATIENT
  Age: 81 Year
  Sex: Female

DRUGS (10)
  1. COZAAR [Suspect]
     Indication: HYPERTENSION
     Dosage: 100 MG, QD
     Route: 048
     Dates: start: 2001
  2. COZAAR [Suspect]
     Dosage: 100 MG, BID
     Route: 048
  3. COZAAR [Suspect]
     Dosage: 100 MG, TID
     Route: 048
  4. COZAAR [Suspect]
     Dosage: 100 MG, QD
     Route: 048
  5. COZAAR [Suspect]
     Indication: HYPERTENSION
     Dosage: 50 MG, QD
     Route: 048
  6. LOSARTAN POTASSIUM [Suspect]
     Dosage: TOOK 3 - 4 TABLETS
     Route: 048
     Dates: start: 2004
  7. XANAX [Concomitant]
  8. PRANDIN (DEFLAZACORT) [Concomitant]
  9. BETAPACE [Concomitant]
  10. HYTRIN [Concomitant]

REACTIONS (15)
  - Infection [Unknown]
  - Drug ineffective [Not Recovered/Not Resolved]
  - Blood pressure inadequately controlled [Not Recovered/Not Resolved]
  - Blood pressure fluctuation [Not Recovered/Not Resolved]
  - Prescribed overdose [Unknown]
  - Inappropriate schedule of drug administration [Unknown]
  - Nervousness [Unknown]
  - Blood pressure increased [Unknown]
  - Dizziness [Unknown]
  - Headache [Unknown]
  - Cough [Unknown]
  - Headache [Recovered/Resolved]
  - Product odour abnormal [Unknown]
  - Limb discomfort [Unknown]
  - Muscle disorder [Unknown]
